FAERS Safety Report 8231273-5 (Version None)
Quarter: 2012Q1

REPORT INFORMATION
  Report Type: 
  Country: None (occurrence: None)
  Receive Date: 20120321
  Receipt Date: 20120312
  Transmission Date: 20120608
  Serious: Yes (Other)
  Sender: FDA-Public Use
  Company Number: AUR-APL-2012-01450

PATIENT
  Age: 37 Year
  Sex: Male

DRUGS (1)
  1. RISPERIDONE [Suspect]
     Indication: DELUSION
     Dosage: (1 MG, 1 D), 4 MG (2 MG, 2 IN 1 D)

REACTIONS (6)
  - PSYCHOTIC DISORDER [None]
  - HALLUCINATION, VISUAL [None]
  - MANIA [None]
  - IRRITABILITY [None]
  - ILLUSION [None]
  - AGGRESSION [None]
